FAERS Safety Report 17586766 (Version 2)
Quarter: 2020Q1

REPORT INFORMATION
  Report Type: Spontaneous
  Country: US (occurrence: US)
  Receive Date: 20200326
  Receipt Date: 20200330
  Transmission Date: 20200409
  Serious: Yes (Other)
  Sender: FDA-Public Use
  Company Number: US-JNJFOC-20200329712

PATIENT
  Age: 8 Year
  Sex: Male

DRUGS (15)
  1. CHILDRENS BENADRYL ALLERGY [Suspect]
     Active Substance: DIPHENHYDRAMINE HYDROCHLORIDE
     Indication: RHINORRHOEA
  2. CHILDRENS TYLENOL COLD PLUS COUGH PLUS RUNNY NOSE [Suspect]
     Active Substance: ACETAMINOPHEN\CHLORPHENIRAMINE MALEATE\DEXTROMETHORPHAN HYDROBROMIDE
     Indication: PYREXIA
     Route: 048
     Dates: start: 202003
  3. CHILDRENS MOTRIN [Suspect]
     Active Substance: IBUPROFEN
     Indication: RHINORRHOEA
  4. CHILDRENS TYLENOL COLD PLUS COUGH PLUS RUNNY NOSE [Suspect]
     Active Substance: ACETAMINOPHEN\CHLORPHENIRAMINE MALEATE\DEXTROMETHORPHAN HYDROBROMIDE
     Indication: RHINORRHOEA
  5. CHILDRENS TYLENOL COLD PLUS COUGH PLUS RUNNY NOSE [Suspect]
     Active Substance: ACETAMINOPHEN\CHLORPHENIRAMINE MALEATE\DEXTROMETHORPHAN HYDROBROMIDE
     Indication: OROPHARYNGEAL PAIN
  6. CHILDRENS MOTRIN [Suspect]
     Active Substance: IBUPROFEN
     Indication: DYSPHONIA
  7. CHILDRENS TYLENOL COLD PLUS COUGH PLUS RUNNY NOSE [Suspect]
     Active Substance: ACETAMINOPHEN\CHLORPHENIRAMINE MALEATE\DEXTROMETHORPHAN HYDROBROMIDE
     Indication: DYSPHONIA
  8. CHILDRENS BENADRYL ALLERGY [Suspect]
     Active Substance: DIPHENHYDRAMINE HYDROCHLORIDE
     Indication: COUGH
  9. CHILDRENS BENADRYL ALLERGY [Suspect]
     Active Substance: DIPHENHYDRAMINE HYDROCHLORIDE
     Indication: PYREXIA
     Dosage: 12.5MG/5ML UNKNOWN
     Route: 048
  10. CHILDRENS MOTRIN [Suspect]
     Active Substance: IBUPROFEN
     Indication: OROPHARYNGEAL PAIN
  11. CHILDRENS BENADRYL ALLERGY [Suspect]
     Active Substance: DIPHENHYDRAMINE HYDROCHLORIDE
     Indication: DYSPHONIA
  12. CHILDRENS TYLENOL COLD PLUS COUGH PLUS RUNNY NOSE [Suspect]
     Active Substance: ACETAMINOPHEN\CHLORPHENIRAMINE MALEATE\DEXTROMETHORPHAN HYDROBROMIDE
     Indication: COUGH
  13. CHILDRENS BENADRYL ALLERGY [Suspect]
     Active Substance: DIPHENHYDRAMINE HYDROCHLORIDE
     Indication: OROPHARYNGEAL PAIN
  14. CHILDRENS MOTRIN [Suspect]
     Active Substance: IBUPROFEN
     Indication: PYREXIA
     Route: 048
     Dates: start: 202003
  15. CHILDRENS MOTRIN [Suspect]
     Active Substance: IBUPROFEN
     Indication: COUGH

REACTIONS (3)
  - Hypersomnia [Recovered/Resolved]
  - Urinary retention [Not Recovered/Not Resolved]
  - Decreased appetite [Recovered/Resolved]

NARRATIVE: CASE EVENT DATE: 202003
